FAERS Safety Report 8375041-2 (Version None)
Quarter: 2012Q2

REPORT INFORMATION
  Report Type: 
  Country: None (occurrence: None)
  Receive Date: 20120521
  Receipt Date: 20120509
  Transmission Date: 20120825
  Serious: Yes (Other)
  Sender: FDA-Public Use
  Company Number: TW-BAXTER-2012BAX005419

PATIENT
  Sex: Female

DRUGS (1)
  1. SYMPT.X_GLUTAMINE 10.00 G_POWDER FOR SOLUTION_PACKAGE [Suspect]
     Route: 065

REACTIONS (1)
  - NEOPLASM MALIGNANT [None]
